FAERS Safety Report 20214734 (Version 1)
Quarter: 2021Q4

REPORT INFORMATION
  Report Type: Spontaneous
  Country: ES (occurrence: ES)
  Receive Date: 20211222
  Receipt Date: 20211222
  Transmission Date: 20220303
  Serious: Yes (Other)
  Sender: FDA-Public Use
  Company Number: ES-SAMSUNG BIOEPIS-SB-2021-29602

PATIENT
  Age: 31 Year
  Sex: Female

DRUGS (11)
  1. ETANERCEPT [Suspect]
     Active Substance: ETANERCEPT
     Indication: Seronegative arthritis
     Dosage: UNKNOWN
     Route: 065
  2. ETANERCEPT [Suspect]
     Active Substance: ETANERCEPT
     Indication: Autoinflammatory disease
  3. ANAKINRA [Suspect]
     Active Substance: ANAKINRA
     Indication: Product used for unknown indication
     Route: 058
  4. CANAKINUMAB [Concomitant]
     Active Substance: CANAKINUMAB
     Indication: Seronegative arthritis
     Dosage: UNKNOWN
     Route: 065
  5. CANAKINUMAB [Concomitant]
     Active Substance: CANAKINUMAB
     Indication: Autoinflammatory disease
  6. TOCILIZUMAB [Concomitant]
     Active Substance: TOCILIZUMAB
     Indication: Seronegative arthritis
     Dosage: UNKNOWN
     Route: 065
  7. TOCILIZUMAB [Concomitant]
     Active Substance: TOCILIZUMAB
     Indication: Autoinflammatory disease
  8. PREDNISOLONE [Concomitant]
     Active Substance: PREDNISOLONE
     Indication: Premedication
     Dosage: UNKNOWN
     Route: 065
  9. CETIRIZINE [Concomitant]
     Active Substance: CETIRIZINE HYDROCHLORIDE
     Indication: Premedication
     Dosage: UNKNOWN
     Route: 065
  10. FAMOTIDINE [Concomitant]
     Active Substance: FAMOTIDINE
     Indication: Premedication
     Dosage: UNKNOWN
     Route: 065
  11. MONTELUKAST [Concomitant]
     Active Substance: MONTELUKAST SODIUM
     Indication: Premedication
     Dosage: UNKNOWN
     Route: 065

REACTIONS (6)
  - Erythema [Recovered/Resolved]
  - Pruritus [Recovered/Resolved]
  - Rash maculo-papular [Recovered/Resolved]
  - Lip disorder [Recovered/Resolved]
  - Drug ineffective for unapproved indication [Unknown]
  - Product use in unapproved indication [Unknown]
